FAERS Safety Report 5011954-7 (Version None)
Quarter: 2006Q2

REPORT INFORMATION
  Report Type: 
  Country: None (occurrence: None)
  Receive Date: 20060526
  Receipt Date: 20060519
  Transmission Date: 20061013
  Serious: Yes (Hospitalization)
  Sender: FDA-Public Use
  Company Number: FR-ROCHE-448594

PATIENT
  Age: 48 Year
  Sex: Female

DRUGS (3)
  1. XELODA [Suspect]
     Route: 048
     Dates: start: 20060309, end: 20060320
  2. HERCEPTIN [Suspect]
     Route: 042
     Dates: start: 20060309, end: 20060309
  3. TOPALGIC [Suspect]
     Indication: DRUG USE FOR UNKNOWN INDICATION
     Route: 048
     Dates: end: 20060322

REACTIONS (3)
  - OEDEMA [None]
  - PAIN [None]
  - PURPURA [None]
